FAERS Safety Report 15962641 (Version 1)
Quarter: 2019Q1

REPORT INFORMATION
  Report Type: Spontaneous
  Country: BR (occurrence: BR)
  Receive Date: 20190214
  Receipt Date: 20190214
  Transmission Date: 20190417
  Serious: Yes (Death, Hospitalization, Other)
  Sender: FDA-Public Use
  Company Number: PHHY2019BR033215

PATIENT
  Age: 45 Year
  Sex: Female

DRUGS (2)
  1. MYCOPHENOLATE MOFETIL. [Suspect]
     Active Substance: MYCOPHENOLATE MOFETIL
     Indication: IMMUNOSUPPRESSANT DRUG THERAPY
     Route: 065
  2. PREDNISONE. [Suspect]
     Active Substance: PREDNISONE
     Indication: IMMUNOSUPPRESSANT DRUG THERAPY
     Route: 065

REACTIONS (10)
  - Pulmonary tuberculosis [Unknown]
  - Breast mass [Unknown]
  - Sepsis [Unknown]
  - Panniculitis [Unknown]
  - Pneumonia [Unknown]
  - Skin necrosis [Unknown]
  - Cytomegalovirus infection [Fatal]
  - Dyspnoea [Unknown]
  - Pyrexia [Unknown]
  - Depressed level of consciousness [Unknown]
